FAERS Safety Report 13754722 (Version 1)
Quarter: 2017Q3

REPORT INFORMATION
  Report Type: Spontaneous
  Country: US (occurrence: US)
  Receive Date: 20170714
  Receipt Date: 20170714
  Transmission Date: 20171127
  Serious: No
  Sender: FDA-Public Use
  Company Number: GXBR2017US001778

PATIENT
  Age: 65 Year
  Sex: Male
  Weight: 102.4 kg

DRUGS (1)
  1. NEO AND POLY B SULFATES + HYDROCORTISONE [Suspect]
     Active Substance: BACITRACIN\NEOMYCIN\POLYMYXIN B
     Indication: INFECTION
     Dosage: 4 GTT IN RIGHT EAR, TID
     Route: 001
     Dates: start: 20170519

REACTIONS (2)
  - Incorrect product formulation administered [Not Recovered/Not Resolved]
  - Drug ineffective [Not Recovered/Not Resolved]
